FAERS Safety Report 11826297 (Version 1)
Quarter: 2015Q4

REPORT INFORMATION
  Report Type: Spontaneous
  Country: US (occurrence: None)
  Receive Date: 20151210
  Receipt Date: 20151210
  Transmission Date: 20160305
  Serious: No
  Sender: FDA-Public Use
  Company Number: None

PATIENT
  Age: 33 Year
  Sex: Female
  Weight: 72.58 kg

DRUGS (1)
  1. NASACORT [Suspect]
     Active Substance: TRIAMCINOLONE ACETONIDE
     Indication: MULTIPLE ALLERGIES
     Dosage: 1 SPRAY DAILY
     Route: 045
     Dates: start: 20150401, end: 20151205

REACTIONS (2)
  - Drug withdrawal syndrome [None]
  - Oral candidiasis [None]

NARRATIVE: CASE EVENT DATE: 20151205
